FAERS Safety Report 5002948-6 (Version None)
Quarter: 2006Q2

REPORT INFORMATION
  Report Type: 
  Country: None (occurrence: None)
  Receive Date: 20060516
  Receipt Date: 20060509
  Transmission Date: 20061013
  Serious: Yes (Other)
  Sender: FDA-Public Use
  Company Number: FR-GLAXOSMITHKLINE-B0423048A

PATIENT
  Age: 25 Year
  Sex: Female
  Weight: 116 kg

DRUGS (4)
  1. KIVEXA [Suspect]
     Indication: HIV INFECTION
     Dosage: 1TAB PER DAY
     Route: 048
     Dates: start: 20051121, end: 20051230
  2. TELZIR [Suspect]
     Indication: HIV INFECTION
     Dosage: 700MG TWICE PER DAY
     Route: 048
     Dates: start: 20051121, end: 20051230
  3. RITONAVIR [Suspect]
     Indication: HIV INFECTION
     Dosage: 100MG TWICE PER DAY
     Route: 048
     Dates: start: 20051121, end: 20051230
  4. ADEPAL [Suspect]
     Indication: ORAL CONTRACEPTION
     Dosage: 30MCG PER DAY
     Route: 048
     Dates: start: 20030101

REACTIONS (3)
  - ALANINE AMINOTRANSFERASE INCREASED [None]
  - ASPARTATE AMINOTRANSFERASE INCREASED [None]
  - CELL DEATH [None]
